FAERS Safety Report 9222667 (Version 1)
Quarter: 2013Q2

REPORT INFORMATION
  Report Type: Spontaneous
  Country: US (occurrence: US)
  Receive Date: 20130410
  Receipt Date: 20130410
  Transmission Date: 20140414
  Serious: Yes (Hospitalization)
  Sender: FDA-Public Use
  Company Number: US-FRI-1000022659

PATIENT
  Age: 54 Year
  Sex: Female

DRUGS (15)
  1. VIIBRYD [Suspect]
     Indication: MAJOR DEPRESSION
     Dosage: 10 MG
     Route: 048
     Dates: start: 20110727, end: 20110802
  2. VIIBRYD [Suspect]
     Dosage: 20 MG
     Route: 048
     Dates: start: 20110803, end: 20110809
  3. VIIBRYD [Suspect]
     Indication: MAJOR DEPRESSION
     Dosage: 40 MG
     Route: 048
     Dates: start: 20110810, end: 20130322
  4. VIIBRYD [Suspect]
     Dosage: 20 MG
     Route: 048
     Dates: start: 20130323, end: 20130329
  5. VIIBRYD [Suspect]
     Dosage: 10 MG
     Route: 048
     Dates: start: 20130330, end: 20130405
  6. VIVACTIL [Concomitant]
     Indication: DEPRESSION
     Dosage: 30 MG
     Route: 048
  7. XANAX [Concomitant]
     Dosage: AS NEEDED
  8. DIOVAN [Concomitant]
     Indication: HYPERTENSION
     Dosage: 320 MG
  9. HYDROCHLOROTHIAZIDE [Concomitant]
     Indication: HYPERTENSION
  10. NEXIUM [Concomitant]
     Indication: GASTROOESOPHAGEAL REFLUX DISEASE
  11. BENTYL [Concomitant]
  12. DEPLIN [Concomitant]
  13. ATIVAN [Concomitant]
     Dosage: 1 MG PRN
  14. NUVIGIL [Concomitant]
     Indication: NARCOLEPSY
     Dosage: 150 MG
  15. ASPIRIN [Concomitant]

REACTIONS (10)
  - Suicide attempt [Recovered/Resolved]
  - Nightmare [Unknown]
  - Fatigue [Recovered/Resolved]
  - Haemorrhage [Not Recovered/Not Resolved]
  - Increased tendency to bruise [Not Recovered/Not Resolved]
  - Crying [Not Recovered/Not Resolved]
  - Back pain [Not Recovered/Not Resolved]
  - Arthralgia [Not Recovered/Not Resolved]
  - Gait disturbance [Not Recovered/Not Resolved]
  - Myalgia [Not Recovered/Not Resolved]
